FAERS Safety Report 6456167-7 (Version None)
Quarter: 2009Q4

REPORT INFORMATION
  Report Type: 
  Country: None (occurrence: None)
  Receive Date: 20091125
  Receipt Date: 20091111
  Transmission Date: 20100525
  Serious: Yes (Hospitalization)
  Sender: FDA-Public Use
  Company Number: ES-ELI_LILLY_AND_COMPANY-ES200911003336

PATIENT
  Age: 73 Year
  Sex: Female

DRUGS (6)
  1. FORTEO [Suspect]
     Indication: OSTEOPOROSIS
     Dosage: 20 UG, UNK
     Route: 058
     Dates: start: 20090701, end: 20091106
  2. IDEOS                              /00944201/ [Concomitant]
     Dosage: UNK, UNKNOWN
  3. ANTIHYPERTENSIVES [Concomitant]
     Indication: HYPERTENSION
     Dosage: UNK, UNKNOWN
  4. DAFLON [Concomitant]
     Dosage: UNK, UNKNOWN
  5. MIRAPEX [Concomitant]
     Indication: PARKINSON'S DISEASE
     Dosage: UNK, UNKNOWN
  6. SINEMET CR [Concomitant]
     Indication: PARKINSON'S DISEASE
     Dosage: UNK, UNKNOWN

REACTIONS (8)
  - CONVULSION [None]
  - DEAFNESS [None]
  - LUNG DISORDER [None]
  - MEMORY IMPAIRMENT [None]
  - PYREXIA [None]
  - SHOCK [None]
  - SPEECH DISORDER [None]
  - URINARY TRACT INFECTION [None]
